FAERS Safety Report 15415358 (Version 1)
Quarter: 2018Q4

REPORT INFORMATION
  Report Type: Spontaneous
  Country: RU (occurrence: JP)
  Receive Date: 20180921
  Receipt Date: 20180921
  Transmission Date: 20190204
  Serious: Yes (Other)
  Sender: FDA-Public Use
  Company Number: RU-BAUSCH-BL-2018-025654

PATIENT
  Age: 73 Year
  Sex: Male

DRUGS (2)
  1. NUCKONE [Suspect]
     Active Substance: BROMFENAC SODIUM
     Indication: OFF LABEL USE
  2. NUCKONE [Suspect]
     Active Substance: BROMFENAC SODIUM
     Indication: PREOPERATIVE CARE
     Dosage: IN EACH EYE
     Route: 047
     Dates: start: 201809, end: 201809

REACTIONS (2)
  - Eyelid irritation [Unknown]
  - Off label use [Recovered/Resolved]

NARRATIVE: CASE EVENT DATE: 201809
